FAERS Safety Report 13738140 (Version 3)
Quarter: 2019Q4

REPORT INFORMATION
  Report Type: Spontaneous
  Country: US (occurrence: US)
  Receive Date: 20170710
  Receipt Date: 20191223
  Transmission Date: 20200122
  Serious: Yes (Hospitalization, Other)
  Sender: FDA-Public Use
  Company Number: US-SA-2017SA121233

PATIENT
  Age: 66 Year
  Sex: Female
  Weight: 73 kg

DRUGS (19)
  1. LOVENOX [Suspect]
     Active Substance: ENOXAPARIN SODIUM
     Indication: DEEP VEIN THROMBOSIS
     Dosage: 80 MG,BID
     Route: 058
     Dates: start: 20170504
  2. OLANZAPINE. [Concomitant]
     Active Substance: OLANZAPINE
     Indication: DECREASED APPETITE
     Dosage: UNK UNK,UNK
     Route: 065
     Dates: start: 20160930
  3. LOVENOX [Suspect]
     Active Substance: ENOXAPARIN SODIUM
     Indication: PULMONARY EMBOLISM
     Dosage: 40 MG,Q12H
     Route: 058
     Dates: start: 20170522, end: 20170524
  4. AVELUMAB [Suspect]
     Active Substance: AVELUMAB
     Dosage: 754 MG (10 MG/KG) EVERY 2 WEEKS
     Route: 065
     Dates: start: 20170421, end: 20170421
  5. OLANZAPINE. [Concomitant]
     Active Substance: OLANZAPINE
     Indication: NAUSEA
  6. POTASSIUM CHLORIDE. [Concomitant]
     Active Substance: POTASSIUM CHLORIDE
     Indication: HYPOKALAEMIA
     Dosage: UNK UNK,UNK
     Route: 065
     Dates: start: 20161118
  7. MAGNESIUM GLUCONATE [Concomitant]
     Active Substance: MAGNESIUM GLUCONATE
     Indication: HYPOMAGNESAEMIA
     Dosage: UNK UNK,UNK
     Route: 065
     Dates: start: 20161118
  8. LOVENOX [Suspect]
     Active Substance: ENOXAPARIN SODIUM
     Dosage: 40 MG,Q12H
     Route: 058
     Dates: start: 20170526
  9. OXYCODONE [Concomitant]
     Active Substance: OXYCODONE
     Indication: BACK PAIN
     Dosage: UNK UNK,UNK
     Route: 065
     Dates: start: 20170509
  10. PRELONE [Concomitant]
     Active Substance: PREDNISOLONE
     Dosage: 75 MG, QD
     Dates: start: 20170525, end: 20170526
  11. LOVENOX [Suspect]
     Active Substance: ENOXAPARIN SODIUM
     Dosage: 40 MG,QD
     Route: 058
     Dates: start: 20170524, end: 20170525
  12. DRONABINOL. [Concomitant]
     Active Substance: DRONABINOL
     Indication: DECREASED APPETITE
     Dosage: UNK UNK,UNK
     Route: 065
     Dates: start: 20170509
  13. ACETAMINOPHEN. [Concomitant]
     Active Substance: ACETAMINOPHEN
     Indication: BACK PAIN
     Dosage: UNK UNK,UNK
     Route: 065
     Dates: start: 20170505
  14. AXITINIB [Suspect]
     Active Substance: AXITINIB
     Indication: RENAL CELL CARCINOMA
     Dosage: 2 MG,BID
     Route: 065
     Dates: start: 20160728, end: 20170505
  15. OLANZAPINE. [Concomitant]
     Active Substance: OLANZAPINE
     Indication: INSOMNIA
  16. ESOMEPRAZOLE. [Concomitant]
     Active Substance: ESOMEPRAZOLE MAGNESIUM
     Indication: DYSPEPSIA
     Dosage: UNK UNK,UNK
     Route: 065
     Dates: start: 20160603
  17. GAMMAGARD [Concomitant]
     Active Substance: HUMAN IMMUNOGLOBULIN G
     Dosage: 500 ML, QD
     Dates: start: 20170521, end: 20170522
  18. AVELUMAB [Suspect]
     Active Substance: AVELUMAB
     Indication: RENAL CELL CARCINOMA
     Dosage: 754 MG (10 MG/KG) EVERY 2 WEEKS
     Route: 065
     Dates: start: 20160728, end: 20160728
  19. OLANZAPINE. [Concomitant]
     Active Substance: OLANZAPINE
     Indication: DEPRESSION

REACTIONS (10)
  - Anaemia [Recovered/Resolved]
  - Oedema peripheral [Recovering/Resolving]
  - Haemorrhage [Recovering/Resolving]
  - Polyneuropathy [Recovering/Resolving]
  - Muscular weakness [Recovered/Resolved with Sequelae]
  - Radiculopathy [Recovering/Resolving]
  - Haemoglobin decreased [Recovering/Resolving]
  - Disease progression [Recovering/Resolving]
  - Muscular weakness [Recovering/Resolving]
  - Haematoma [Recovering/Resolving]

NARRATIVE: CASE EVENT DATE: 20170421
